FAERS Safety Report 8540160 (Version 2)
Quarter: 2012Q4

REPORT INFORMATION
  Report Type: 
  Country: SE (occurrence: SE)
  Receive Date: 20120502
  Receipt Date: 20120911
  Transmission Date: 20130627
  Serious: Yes (Other)
  Sender: FDA-Public Use
  Company Number: SE-PFIZER INC-2012103137

PATIENT
  Age: 63 Year
  Sex: Male

DRUGS (1)
  1. LOPID [Suspect]
     Indication: TYPE V HYPERLIPIDAEMIA
     Dosage: UNK
     Dates: end: 20110501

REACTIONS (1)
  - Hepatitis [Unknown]
